FAERS Safety Report 20307464 (Version 1)
Quarter: 2022Q1

REPORT INFORMATION
  Report Type: Report from Study
  Country: IT (occurrence: IT)
  Receive Date: 20220107
  Receipt Date: 20220107
  Transmission Date: 20220424
  Serious: Yes (Other)
  Sender: FDA-Public Use
  Company Number: None

PATIENT
  Age: 68 Year
  Sex: Male
  Weight: 72 kg

DRUGS (8)
  1. OXALIPLATIN [Suspect]
     Active Substance: OXALIPLATIN
     Indication: Colon cancer
     Dosage: 75 MG
     Route: 042
     Dates: start: 20210506, end: 20211209
  2. PREGABALIN [Concomitant]
     Active Substance: PREGABALIN
     Dosage: 25 MG
     Route: 048
  3. QUINAPRIL [Concomitant]
     Active Substance: QUINAPRIL
     Dosage: 10 MG; QUINAPRIL MYLAN GENERICS
     Route: 048
  4. ALLOPURINOL [Concomitant]
     Active Substance: ALLOPURINOL
     Dosage: 300 MG
     Route: 048
  5. FUROSEMIDE [Concomitant]
     Active Substance: FUROSEMIDE
     Dosage: 25 MG
     Route: 048
  6. FOLINA [Concomitant]
     Dosage: 5 MG; FOLINA 5 MG SOFT CAPSULES
     Route: 048
  7. OMEPRAZOLE [Concomitant]
     Active Substance: OMEPRAZOLE
     Dosage: 20 MG
     Route: 048
  8. CHOLECALCIFEROL [Concomitant]
     Active Substance: CHOLECALCIFEROL
     Dosage: 100000 DF; BASE 100.000 I.U./ML SOLUTION INJECTABLE
     Route: 048

REACTIONS (4)
  - Hypotension [Recovered/Resolved]
  - Lip oedema [Recovered/Resolved]
  - Bradycardia [Recovered/Resolved]
  - Sensory loss [Recovered/Resolved]

NARRATIVE: CASE EVENT DATE: 20211209
